FAERS Safety Report 20203447 (Version 6)
Quarter: 2022Q3

REPORT INFORMATION
  Report Type: Spontaneous
  Country: DE (occurrence: DE)
  Receive Date: 20211218
  Receipt Date: 20220909
  Transmission Date: 20221027
  Serious: Yes (Hospitalization, Other)
  Sender: FDA-Public Use
  Company Number: DE-NOVARTISPH-NVSC2021DE251944

PATIENT
  Sex: Male
  Weight: 83 kg

DRUGS (49)
  1. VALSARTAN [Suspect]
     Active Substance: VALSARTAN
     Indication: Hypertension
     Dosage: 0.5 DF, (80 MG) BID (MORNING, NOON)
     Route: 065
     Dates: start: 20120313, end: 20180709
  2. VALSARTAN [Suspect]
     Active Substance: VALSARTAN
     Dosage: 1 DF, (160 MG) QD IN THE EVENING
     Route: 065
     Dates: start: 20120313, end: 20180709
  3. VALSARTAN [Suspect]
     Active Substance: VALSARTAN
     Dosage: DIVIDED TABLET OF 160 MG, QD
     Route: 065
     Dates: start: 2013, end: 2013
  4. VALSARTAN [Suspect]
     Active Substance: VALSARTAN
     Dosage: 0.5 DF, (80 MG) BID (MORNING, NOON)
     Route: 065
     Dates: start: 20140710, end: 20181217
  5. VALSARTAN [Suspect]
     Active Substance: VALSARTAN
     Dosage: 1 DF, (160 MG) QD IN THE EVENING
     Route: 065
     Dates: start: 20140710, end: 20181217
  6. VALSARTAN [Suspect]
     Active Substance: VALSARTAN
     Dosage: 320 MG, QD
     Route: 065
     Dates: start: 2013, end: 2013
  7. METOPROLOL [Suspect]
     Active Substance: METOPROLOL
     Indication: Essential tremor
     Dosage: UNK
     Route: 065
     Dates: start: 201203, end: 201203
  8. PROPRANOLOL [Suspect]
     Active Substance: PROPRANOLOL HYDROCHLORIDE
     Indication: Essential tremor
     Dosage: UNK
     Route: 065
     Dates: start: 201203, end: 201203
  9. CAPTOPRIL [Suspect]
     Active Substance: CAPTOPRIL
     Indication: Hypertension
     Dosage: 100 MG, QD
     Route: 065
     Dates: end: 201112
  10. HYDROCHLOROTHIAZIDE\VALSARTAN [Suspect]
     Active Substance: HYDROCHLOROTHIAZIDE\VALSARTAN
     Indication: Hypertension
     Dosage: 160/25 MG
     Route: 065
  11. HYDROCHLOROTHIAZIDE\VALSARTAN [Suspect]
     Active Substance: HYDROCHLOROTHIAZIDE\VALSARTAN
     Indication: Product used for unknown indication
     Dosage: UNK
     Route: 065
  12. VALSARTAN [Suspect]
     Active Substance: VALSARTAN
     Indication: Hypertension
     Dosage: 80 MG, BID (MORNING AND EVENING)
     Route: 065
  13. VALSARTAN [Suspect]
     Active Substance: VALSARTAN
     Dosage: 1 DF, (80 MG) QID
     Route: 065
     Dates: start: 201410
  14. VALSARTAN [Suspect]
     Active Substance: VALSARTAN
     Dosage: 0.5 DF, (160 MG) BID (MORNING, NOON)
     Route: 065
  15. VALSARTAN [Suspect]
     Active Substance: VALSARTAN
     Dosage: 160 MG, IN THE EVENING
     Route: 065
  16. VALSARTAN [Suspect]
     Active Substance: VALSARTAN
     Dosage: 1 DF, (160 MG) BID MORNING, EVENING)
     Route: 065
  17. VALSARTAN [Suspect]
     Active Substance: VALSARTAN
     Dosage: 320 MG, QD
     Route: 065
  18. VALSARTAN [Suspect]
     Active Substance: VALSARTAN
     Dosage: 160 MG, QD
     Route: 065
     Dates: start: 20120313, end: 20180709
  19. VALSARTAN [Suspect]
     Active Substance: VALSARTAN
     Dosage: 160 MG, QD
     Route: 065
     Dates: start: 20120710, end: 20181217
  20. VALSARTAN [Suspect]
     Active Substance: VALSARTAN
     Dosage: 160 MG, QD
     Route: 065
     Dates: start: 2013, end: 2013
  21. VALSARTAN [Suspect]
     Active Substance: VALSARTAN
     Dosage: 160 MG, QD
     Route: 065
  22. VALSARTAN [Suspect]
     Active Substance: VALSARTAN
     Dosage: 320 MG, QD
     Route: 065
     Dates: start: 2013, end: 2013
  23. VALSARTAN [Suspect]
     Active Substance: VALSARTAN
     Dosage: 320 MG, QD
     Route: 065
     Dates: start: 201410
  24. HYDROCHLOROTHIAZIDE [Suspect]
     Active Substance: HYDROCHLOROTHIAZIDE
     Indication: Product used for unknown indication
     Dosage: UNK
     Route: 065
  25. MOXONIDINE [Suspect]
     Active Substance: MOXONIDINE
     Indication: Hypertension
     Dosage: UNK
     Route: 065
  26. AMLODIPINE [Suspect]
     Active Substance: AMLODIPINE BESYLATE
     Indication: Hypertension
     Dosage: 5 MG, BID (MORNING, EVENING)
     Route: 065
  27. VERAPAMIL HYDROCHLORIDE [Suspect]
     Active Substance: VERAPAMIL HYDROCHLORIDE
     Indication: Product used for unknown indication
     Dosage: UNK
     Route: 065
  28. UNSPECIFIED INGREDIENT [Concomitant]
     Active Substance: UNSPECIFIED INGREDIENT
     Indication: Product used for unknown indication
     Dosage: UNK
     Route: 065
  29. NEBIVOLOL [Concomitant]
     Active Substance: NEBIVOLOL
     Indication: Product used for unknown indication
     Dosage: UNK
     Route: 065
     Dates: end: 201112
  30. TORSEMIDE [Concomitant]
     Active Substance: TORSEMIDE
     Indication: Hypertension
     Dosage: 1 DOSAGE FORM OF 10 MG
     Route: 065
     Dates: start: 1998
  31. TORSEMIDE [Concomitant]
     Active Substance: TORSEMIDE
     Dosage: 0.5 DOSAGE FORM, BID OF 5MG MORNING, NOON
     Route: 065
     Dates: start: 1998, end: 2014
  32. TORSEMIDE [Concomitant]
     Active Substance: TORSEMIDE
     Dosage: 1 DOSAGE FORM, QD OF 5 MG MORNING
     Route: 065
     Dates: start: 2014
  33. TORSEMIDE [Concomitant]
     Active Substance: TORSEMIDE
     Dosage: 5 MG, QD, EVENING
     Route: 065
     Dates: start: 201409
  34. TORSEMIDE [Concomitant]
     Active Substance: TORSEMIDE
     Dosage: 1 DOSAGE FORM, QD
     Route: 065
  35. TORSEMIDE [Concomitant]
     Active Substance: TORSEMIDE
     Dosage: 1 DOSAGE FORM, BID OF 5 MG MORNING AND EVENING
     Route: 065
  36. TORSEMIDE [Concomitant]
     Active Substance: TORSEMIDE
     Indication: Hypertension
     Dosage: 1 DOSAGE FORM, QD OF 5 MG EVENING
     Route: 065
     Dates: start: 2018, end: 2018
  37. KERLONE [Concomitant]
     Active Substance: BETAXOLOL HYDROCHLORIDE
     Indication: Product used for unknown indication
     Dosage: 1 DOSAGE FORM, QD OF 20 MG MORNING
     Route: 065
  38. KERLONE [Concomitant]
     Active Substance: BETAXOLOL HYDROCHLORIDE
     Dosage: 1 DOSAGE FORM, QD OF 10 MG MORNING
     Route: 065
     Dates: start: 201112, end: 201112
  39. KERLONE [Concomitant]
     Active Substance: BETAXOLOL HYDROCHLORIDE
     Dosage: 0.5 DOSAGE FORM, QD ( IN MORNING)
     Route: 065
  40. KERLONE [Concomitant]
     Active Substance: BETAXOLOL HYDROCHLORIDE
     Dosage: 20 MG, QD
     Route: 065
  41. HYDROCHLOROTHIAZIDE\LISINOPRIL [Concomitant]
     Active Substance: HYDROCHLOROTHIAZIDE\LISINOPRIL
     Indication: Hypertension
     Dosage: UNK UNK, QD
     Route: 065
     Dates: start: 1998
  42. HYDROCHLOROTHIAZIDE\LISINOPRIL [Concomitant]
     Active Substance: HYDROCHLOROTHIAZIDE\LISINOPRIL
     Dosage: 0.5 DOSAGE FORM, BID
     Route: 065
  43. BISOPROLOL [Concomitant]
     Active Substance: BISOPROLOL
     Indication: Hypertension
     Dosage: 0.5 DOSAGE FORM, BID OF 5 MG MORNING, NOON
     Route: 065
  44. BISOPROLOL [Concomitant]
     Active Substance: BISOPROLOL
     Dosage: 1 DOSAGE FORM, QD OF 5 MG MORNING
     Route: 065
     Dates: start: 201410
  45. BISOPROLOL [Concomitant]
     Active Substance: BISOPROLOL
     Dosage: 5 MG, QD
     Route: 065
     Dates: start: 201410
  46. FELODIPINE [Concomitant]
     Active Substance: FELODIPINE
     Indication: Hypertension
     Dosage: 1 DOSAGE FORM, BID OF 5 MG MORNING, EVENING
     Route: 065
  47. CANDESARTAN [Concomitant]
     Active Substance: CANDESARTAN
     Indication: Product used for unknown indication
     Dosage: 0.5 DOSAGE FORM, BID OF 16 MG MORNING , NOON
     Route: 065
  48. CANDESARTAN [Concomitant]
     Active Substance: CANDESARTAN
     Dosage: 1 DOSAGE FORM, QD OF 16 MG EVENING
     Route: 065
  49. CANDESARTAN [Concomitant]
     Active Substance: CANDESARTAN
     Dosage: 1 DOSAGE FORM
     Route: 065

REACTIONS (97)
  - Obstructive sleep apnoea syndrome [Unknown]
  - Intervertebral disc protrusion [Unknown]
  - Headache [Unknown]
  - Sinus headache [Unknown]
  - Facial pain [Unknown]
  - Snoring [Unknown]
  - Fatigue [Recovered/Resolved]
  - Dry mouth [Unknown]
  - Restless legs syndrome [Unknown]
  - Orthostatic intolerance [Recovered/Resolved]
  - Vestibular neuronitis [Recovered/Resolved]
  - Vertigo [Recovered/Resolved]
  - Nausea [Recovered/Resolved]
  - Peroneal nerve palsy [Unknown]
  - Peroneal nerve injury [Unknown]
  - Extensor plantar response [Unknown]
  - Back pain [Recovered/Resolved]
  - Asthenia [Unknown]
  - Pain [Recovered/Resolved]
  - Pain [Recovering/Resolving]
  - Intervertebral disc disorder [Unknown]
  - Coronary artery disease [Unknown]
  - Coronary artery stenosis [Unknown]
  - Arteriosclerosis coronary artery [Unknown]
  - Cardiopulmonary exercise test abnormal [Unknown]
  - Dyspnoea exertional [Unknown]
  - Fatigue [Unknown]
  - Aortic valve incompetence [Unknown]
  - Pulmonary valve incompetence [Unknown]
  - Tricuspid valve incompetence [Unknown]
  - Neurogenic shock [Unknown]
  - Skin discolouration [Unknown]
  - Peripheral swelling [Unknown]
  - Angina pectoris [Unknown]
  - Myosclerosis [Unknown]
  - Osteochondrosis [Unknown]
  - Mental disorder [Not Recovered/Not Resolved]
  - Quality of life decreased [Unknown]
  - Merycism [Unknown]
  - Dizziness [Unknown]
  - Abdominal pain [Unknown]
  - Drug intolerance [Unknown]
  - Actinic keratosis [Unknown]
  - Solar lentigo [Unknown]
  - Actinic keratosis [Recovered/Resolved]
  - Melanocytic naevus [Unknown]
  - Peripheral venous disease [Unknown]
  - Skin erosion [Unknown]
  - Wound [Unknown]
  - Diverticulum [Unknown]
  - Cognitive disorder [Recovered/Resolved]
  - Memory impairment [Recovering/Resolving]
  - Drug hypersensitivity [Unknown]
  - Hernia [Unknown]
  - Oesophagitis [Unknown]
  - Inflammation [Unknown]
  - Helicobacter test positive [Unknown]
  - Abdominal discomfort [Unknown]
  - Factor VII deficiency [Unknown]
  - Migraine with aura [Recovered/Resolved]
  - Neuralgia [Unknown]
  - Spinal osteoarthritis [Unknown]
  - Neurofibroma [Unknown]
  - Neoplasm skin [Unknown]
  - Aortic dilatation [Unknown]
  - Oedema peripheral [Unknown]
  - Hypercholesterolaemia [Unknown]
  - Rotator cuff syndrome [Unknown]
  - Musculoskeletal stiffness [Unknown]
  - Periarthritis [Unknown]
  - Knee deformity [Unknown]
  - Patellofemoral pain syndrome [Unknown]
  - Meniscopathy [Unknown]
  - Arthritis [Unknown]
  - Sacroiliac joint dysfunction [Unknown]
  - Benign prostatic hyperplasia [Unknown]
  - Nocturia [Unknown]
  - Osteoarthritis [Unknown]
  - Meniscus injury [Unknown]
  - Hypertension [Unknown]
  - Stasis dermatitis [Unknown]
  - Haematoma [Unknown]
  - Bursitis [Unknown]
  - Arthralgia [Recovering/Resolving]
  - Back pain [Recovering/Resolving]
  - Gait disturbance [Unknown]
  - Disturbance in attention [Unknown]
  - Dysphagia [Unknown]
  - Joint dislocation [Unknown]
  - Monoparesis [Unknown]
  - Nerve injury [Unknown]
  - Joint hyperextension [Unknown]
  - Chondropathy [Unknown]
  - Pelvic misalignment [Unknown]
  - Neck pain [Unknown]
  - Cervicobrachial syndrome [Unknown]
  - Product use in unapproved indication [Unknown]

NARRATIVE: CASE EVENT DATE: 20050101
